FAERS Safety Report 6665996-6 (Version None)
Quarter: 2010Q1

REPORT INFORMATION
  Report Type: 
  Country: None (occurrence: None)
  Receive Date: 20100330
  Receipt Date: 20100316
  Transmission Date: 20100710
  Serious: Yes (Other)
  Sender: FDA-Public Use
  Company Number: 2010-0884

PATIENT
  Age: 74 Year
  Sex: Female
  Weight: 46 kg

DRUGS (4)
  1. DYSPORT [Suspect]
     Indication: SKIN WRINKLING
     Dosage: (SINGLE CYCLE),INTRAMUSCULAR
     Route: 030
     Dates: start: 20100303, end: 20100303
  2. SINGULAIR [Concomitant]
  3. CLARINEX (NARINE) [Concomitant]
  4. HYPERTHYROID MEDICATION (ANTITHYROID PREPARATIONS) [Concomitant]

REACTIONS (5)
  - FATIGUE [None]
  - MUSCULAR WEAKNESS [None]
  - OFF LABEL USE [None]
  - SPEECH DISORDER [None]
  - TREMOR [None]
